FAERS Safety Report 4614371-4 (Version None)
Quarter: 2005Q1

REPORT INFORMATION
  Report Type: 
  Country: None (occurrence: None)
  Receive Date: 20050315
  Receipt Date: 20050228
  Transmission Date: 20050727
  Serious: Yes (Hospitalization, Other)
  Sender: FDA-Public Use
  Company Number: 8009200

PATIENT
  Age: 40 Year
  Sex: Female
  Weight: 70 kg

DRUGS (4)
  1. KEPPRA [Suspect]
     Dates: start: 20041001
  2. KEPPRA [Suspect]
     Dosage: 140000 MG ONCE PO
     Route: 048
  3. OLANZAPINE [Suspect]
     Dosage: 500 MG ONCE PO
     Route: 048
  4. DIAZEPAM [Suspect]
     Dosage: ONCE PO
     Route: 048

REACTIONS (10)
  - AREFLEXIA [None]
  - COMA [None]
  - HAEMODIALYSIS [None]
  - HYPOTENSION [None]
  - INTENTIONAL MISUSE [None]
  - MEDICAL DEVICE COMPLICATION [None]
  - OBSTRUCTION [None]
  - SOMNOLENCE [None]
  - SUICIDE ATTEMPT [None]
  - TACHYCARDIA [None]
